FAERS Safety Report 6956412-5 (Version None)
Quarter: 2010Q3

REPORT INFORMATION
  Report Type: 
  Country: None (occurrence: None)
  Receive Date: 20100830
  Receipt Date: 20100818
  Transmission Date: 20110219
  Serious: Yes (Other)
  Sender: FDA-Public Use
  Company Number: B0668212A

PATIENT
  Sex: Female

DRUGS (4)
  1. VALTREX [Suspect]
     Indication: GENITAL HERPES
     Route: 065
  2. HYALURONIC ACID [Suspect]
     Indication: FLUID REPLACEMENT
     Route: 065
     Dates: start: 20100331
  3. LEVOTHYROXINE SODIUM [Concomitant]
  4. PRILOSEC [Concomitant]
     Indication: ILL-DEFINED DISORDER

REACTIONS (5)
  - DRUG INTERACTION [None]
  - LOCAL SWELLING [None]
  - LYMPHOPENIA [None]
  - SWELLING FACE [None]
  - SYSTEMIC LUPUS ERYTHEMATOSUS [None]
